FAERS Safety Report 5587079-9 (Version None)
Quarter: 2008Q1

REPORT INFORMATION
  Report Type: 
  Country: None (occurrence: None)
  Receive Date: 20080110
  Receipt Date: 20080103
  Transmission Date: 20080703
  Serious: Yes (Other)
  Sender: FDA-Public Use
  Company Number: B0361719A

PATIENT
  Age: 30 Year
  Sex: Male

DRUGS (5)
  1. PAROXETINE HYDROCHLORIDE [Suspect]
     Indication: DEPRESSION
     Dosage: 20MG PER DAY
     Route: 065
     Dates: start: 19981229
  2. PROTHIADEN [Concomitant]
     Dates: start: 19981202
  3. CIPRAMIL [Concomitant]
     Dates: start: 20020101
  4. EFFEXOR [Concomitant]
     Dates: start: 20020113
  5. ZISPIN [Concomitant]
     Dates: start: 20050509

REACTIONS (24)
  - ANGER [None]
  - CONFUSIONAL STATE [None]
  - DEPERSONALISATION [None]
  - DISTURBANCE IN ATTENTION [None]
  - DIZZINESS [None]
  - DRUG WITHDRAWAL SYNDROME [None]
  - HYPERHIDROSIS [None]
  - HYPOAESTHESIA [None]
  - INFLUENZA LIKE ILLNESS [None]
  - INSOMNIA [None]
  - INTENTIONAL SELF-INJURY [None]
  - IRRITABILITY [None]
  - MEMORY IMPAIRMENT [None]
  - MENTAL STATUS CHANGES [None]
  - MIGRAINE [None]
  - MOOD SWINGS [None]
  - NAUSEA [None]
  - NIGHTMARE [None]
  - PARAESTHESIA [None]
  - TEARFULNESS [None]
  - THINKING ABNORMAL [None]
  - TREMOR [None]
  - VISION BLURRED [None]
  - WEIGHT INCREASED [None]
